FAERS Safety Report 25300530 (Version 1)
Quarter: 2025Q2

REPORT INFORMATION
  Report Type: Spontaneous
  Country: US (occurrence: US)
  Receive Date: 20250512
  Receipt Date: 20250512
  Transmission Date: 20250716
  Serious: Yes (Other)
  Sender: CATALYST PHARMA
  Company Number: US-CATALYST PHARMACEUTICALS, INC-2021CAT00161

PATIENT
  Sex: Female

DRUGS (2)
  1. FIRDAPSE [Suspect]
     Active Substance: AMIFAMPRIDINE PHOSPHATE
     Indication: Myasthenic syndrome
     Dosage: 60 MG DAILY DOSE
     Route: 048
     Dates: start: 201910
  2. OXYCODONE [Suspect]
     Active Substance: OXYCODONE
     Indication: Pain
     Route: 065

REACTIONS (21)
  - Myasthenia gravis [Not Recovered/Not Resolved]
  - Brain injury [Not Recovered/Not Resolved]
  - Fatigue [Unknown]
  - Migraine [Unknown]
  - Speech disorder [Unknown]
  - Dysgraphia [Unknown]
  - Pain [Unknown]
  - Neck injury [Unknown]
  - Head injury [Unknown]
  - Condition aggravated [Unknown]
  - Muscle atrophy [Unknown]
  - Apathy [Unknown]
  - Pelvic floor dysfunction [Not Recovered/Not Resolved]
  - Anorectal disorder [Not Recovered/Not Resolved]
  - Myalgia [Not Recovered/Not Resolved]
  - Balance disorder [Not Recovered/Not Resolved]
  - Tongue disorder [Not Recovered/Not Resolved]
  - Asthenia [Unknown]
  - Pain in extremity [Not Recovered/Not Resolved]
  - Unevaluable event [Unknown]
  - Back pain [Not Recovered/Not Resolved]
